FAERS Safety Report 6057212-3 (Version None)
Quarter: 2009Q1

REPORT INFORMATION
  Report Type: 
  Country: None (occurrence: None)
  Receive Date: 20090129
  Receipt Date: 20080415
  Transmission Date: 20090719
  Serious: No
  Sender: FDA-Public Use
  Company Number: A0719179A

PATIENT
  Age: 55 Year
  Sex: Male
  Weight: 90.9 kg

DRUGS (5)
  1. BUPROPION HYDROCHLORIDE [Suspect]
     Indication: BIPOLAR DISORDER
     Dosage: 300MG PER DAY
     Route: 048
     Dates: start: 20020101
  2. LAMICTAL [Suspect]
     Indication: BIPOLAR DISORDER
     Dosage: 100MG PER DAY
     Route: 048
     Dates: start: 20050101
  3. CARDIAC MEDICATION [Concomitant]
  4. PROZAC [Concomitant]
  5. TRAZODONE HCL [Concomitant]

REACTIONS (1)
  - AMNESIA [None]
